FAERS Safety Report 17705723 (Version 2)
Quarter: 2020Q2

REPORT INFORMATION
  Report Type: Spontaneous
  Country: US (occurrence: US)
  Receive Date: 20200424
  Receipt Date: 20200508
  Transmission Date: 20200714
  Serious: Yes (Other)
  Sender: FDA-Public Use
  Company Number: US-AKORN PHARMACEUTICALS-2020AKN00514

PATIENT
  Age: 16 Year
  Sex: Male
  Weight: 60.77 kg

DRUGS (3)
  1. MYORISAN [Suspect]
     Active Substance: ISOTRETINOIN
     Indication: ACNE CYSTIC
     Dosage: 30 MG, 1X/DAY
     Route: 048
     Dates: start: 20200127, end: 20200306
  2. PREDNISONE. [Concomitant]
     Active Substance: PREDNISONE
  3. FLONASE [Concomitant]
     Active Substance: FLUTICASONE PROPIONATE

REACTIONS (6)
  - Discomfort [Unknown]
  - Mood altered [Recovered/Resolved]
  - Off label use [Recovered/Resolved]
  - Anxiety [Recovered/Resolved]
  - Aggression [Recovered/Resolved]
  - Unevaluable event [Unknown]

NARRATIVE: CASE EVENT DATE: 20200127
